FAERS Safety Report 7845034-X (Version None)
Quarter: 2011Q4

REPORT INFORMATION
  Report Type: 
  Country: None (occurrence: None)
  Receive Date: 20111025
  Receipt Date: 20111018
  Transmission Date: 20120403
  Serious: Yes (Hospitalization, Other)
  Sender: FDA-Public Use
  Company Number: JP-BAYER-2011-098300

PATIENT
  Age: 66 Year
  Sex: Male

DRUGS (4)
  1. ASPIRIN [Suspect]
     Indication: ANGINA PECTORIS
     Dosage: UNK
     Route: 048
  2. PLATELETS [Concomitant]
     Indication: ANGINA PECTORIS
     Dosage: UNK
     Route: 065
  3. PLATELETS [Concomitant]
     Indication: SPINAL COLUMN STENOSIS
  4. ASPIRIN [Suspect]
     Indication: SPINAL COLUMN STENOSIS

REACTIONS (3)
  - SHOCK [None]
  - DIVERTICULUM INTESTINAL HAEMORRHAGIC [None]
  - HYPOTENSION [None]
